FAERS Safety Report 14078192 (Version 1)
Quarter: 2017Q4

REPORT INFORMATION
  Report Type: Spontaneous
  Country: US (occurrence: None)
  Receive Date: 20171012
  Receipt Date: 20171012
  Transmission Date: 20180321
  Serious: No
  Sender: FDA-Public Use
  Company Number: None

PATIENT

DRUGS (2)
  1. GABAPENTIN. [Suspect]
     Active Substance: GABAPENTIN
  2. ETODOLAC. [Suspect]
     Active Substance: ETODOLAC
     Dosage: TYPE - BOTTLE

REACTIONS (1)
  - Drug dispensing error [None]
